FAERS Safety Report 21401073 (Version 1)
Quarter: 2022Q4

REPORT INFORMATION
  Report Type: Report from Study
  Country: CN (occurrence: CN)
  Receive Date: 20221003
  Receipt Date: 20221003
  Transmission Date: 20230113
  Serious: Yes (Other)
  Sender: FDA-Public Use
  Company Number: CN-BRISTOL-MYERS SQUIBB COMPANY-2022-112533

PATIENT
  Age: 36 Year
  Sex: Female

DRUGS (1)
  1. OPDIVO [Suspect]
     Active Substance: NIVOLUMAB
     Indication: Gastric cancer
     Route: 041
     Dates: start: 20220414

REACTIONS (3)
  - Gastrointestinal obstruction [Unknown]
  - Off label use [Unknown]
  - Asthenia [Unknown]

NARRATIVE: CASE EVENT DATE: 20220801
